FAERS Safety Report 20492975 (Version 8)
Quarter: 2022Q3

REPORT INFORMATION
  Report Type: Report from Study
  Country: CO (occurrence: CO)
  Receive Date: 20220219
  Receipt Date: 20220829
  Transmission Date: 20221027
  Serious: Yes (Hospitalization)
  Sender: FDA-Public Use
  Company Number: CO-NOVARTISPH-NVSC2021CO174708

PATIENT
  Sex: Female

DRUGS (7)
  1. MEKINIST [Suspect]
     Active Substance: TRAMETINIB DIMETHYL SULFOXIDE
     Indication: BRAF gene mutation
     Dosage: 2 MG, QD
     Route: 048
  2. MEKINIST [Suspect]
     Active Substance: TRAMETINIB DIMETHYL SULFOXIDE
     Indication: Metastatic malignant melanoma
     Dosage: UNK UNK, QD
     Route: 048
  3. TAFINLAR [Suspect]
     Active Substance: DABRAFENIB MESYLATE
     Indication: BRAF gene mutation
     Dosage: UNK UNK, QD
     Route: 048
  4. TAFINLAR [Suspect]
     Active Substance: DABRAFENIB MESYLATE
     Indication: Metastatic malignant melanoma
     Dosage: 150 MG, Q12H (TABLET/ CAPSULE)
     Route: 048
  5. TAFINLAR [Suspect]
     Active Substance: DABRAFENIB MESYLATE
     Dosage: UNK, Q12H
     Route: 048
  6. TAFINLAR [Suspect]
     Active Substance: DABRAFENIB MESYLATE
     Dosage: 2 UNK, Q12H (IN THE MORNING AND AT NIGHT)
     Route: 048
  7. TAFINLAR [Suspect]
     Active Substance: DABRAFENIB MESYLATE
     Dosage: 1 UNK (IN THE MORNING AND AT NIGHT)
     Route: 048

REACTIONS (22)
  - Chills [Unknown]
  - Hot flush [Unknown]
  - Malaise [Unknown]
  - Thirst [Unknown]
  - Drug intolerance [Unknown]
  - Oxygen saturation decreased [Unknown]
  - Somnolence [Unknown]
  - Pain [Unknown]
  - Body temperature decreased [Unknown]
  - Fear [Unknown]
  - Anxiety [Unknown]
  - Mass [Unknown]
  - Melanocytic naevus [Unknown]
  - Depressed mood [Unknown]
  - Hypotension [Unknown]
  - Pyrexia [Unknown]
  - Hyperhidrosis [Unknown]
  - Nausea [Unknown]
  - Vomiting [Unknown]
  - Pneumonitis [Unknown]
  - Inappropriate schedule of product administration [Unknown]
  - Product storage error [Unknown]
